FAERS Safety Report 19533647 (Version 1)
Quarter: 2021Q3

REPORT INFORMATION
  Report Type: Spontaneous
  Country: CA (occurrence: CA)
  Receive Date: 20210713
  Receipt Date: 20210713
  Transmission Date: 20211014
  Serious: Yes (Other)
  Sender: FDA-Public Use
  Company Number: CA-SA-2021SA226202

PATIENT
  Sex: Female

DRUGS (12)
  1. IRON [Concomitant]
     Active Substance: IRON
  2. DOMPERIDONE [Suspect]
     Active Substance: DOMPERIDONE
  3. FOLIC ACID. [Concomitant]
     Active Substance: FOLIC ACID
  4. REMICADE [Suspect]
     Active Substance: INFLIXIMAB
  5. RANITIDINE HYDROCHLORIDE. [Suspect]
     Active Substance: RANITIDINE HYDROCHLORIDE
  6. ACETAMINOPHEN AND CODEINE [Suspect]
     Active Substance: ACETAMINOPHEN\CODEINE PHOSPHATE
  7. RANITIDINE. [Suspect]
     Active Substance: RANITIDINE
  8. DOMPERIDONE MALEATE [Suspect]
     Active Substance: DOMPERIDONE MALEATE
  9. PANTOPRAZOLE MAGNESIUM [Suspect]
     Active Substance: PANTOPRAZOLE MAGNESIUM
  10. AZATHIOPRINE. [Suspect]
     Active Substance: AZATHIOPRINE
  11. MEZAVANT [Suspect]
     Active Substance: MESALAMINE
  12. PROGESTERONE. [Suspect]
     Active Substance: PROGESTERONE

REACTIONS (2)
  - Maternal exposure during pregnancy [Unknown]
  - Premature labour [Unknown]
